FAERS Safety Report 17462347 (Version 1)
Quarter: 2020Q1

REPORT INFORMATION
  Report Type: Spontaneous
  Country: PL (occurrence: PL)
  Receive Date: 20200226
  Receipt Date: 20200226
  Transmission Date: 20200409
  Serious: Yes (Other)
  Sender: FDA-Public Use
  Company Number: PL-TEVA-2020-PL-1191779

PATIENT
  Age: 61 Year
  Sex: Female
  Weight: 66 kg

DRUGS (4)
  1. LEUCOVORIN. [Suspect]
     Active Substance: LEUCOVORIN
     Indication: COLON CANCER
     Dosage: 360MG
     Route: 042
     Dates: start: 20190409, end: 20190410
  2. IRINOTECAN FRESENIUS [Suspect]
     Active Substance: IRINOTECAN
     Indication: COLON CANCER
     Dosage: 324MG
     Route: 042
     Dates: start: 20190409, end: 20190409
  3. 5-FLUOROURACIL EBEWE [Suspect]
     Active Substance: FLUOROURACIL
     Indication: COLON CANCER
     Dosage: 2160MG
     Route: 041
     Dates: start: 20190409, end: 20190410
  4. 5-FLUOROURACIL EBEWE [Suspect]
     Active Substance: FLUOROURACIL
     Route: 040
     Dates: start: 20190409, end: 20190410

REACTIONS (2)
  - Asthenia [Unknown]
  - Neutropenia [Unknown]

NARRATIVE: CASE EVENT DATE: 20190409
